FAERS Safety Report 21615616 (Version 1)
Quarter: 2022Q4

REPORT INFORMATION
  Report Type: Spontaneous
  Country: US (occurrence: None)
  Receive Date: 20221117
  Receipt Date: 20221117
  Transmission Date: 20230113
  Serious: No
  Sender: FDA-Public Use
  Company Number: None

PATIENT
  Sex: Female

DRUGS (2)
  1. OMNITROPE [Suspect]
     Active Substance: SOMATROPIN
     Indication: Short stature
     Dosage: FREQUENCY : DAILY;?
     Route: 058
     Dates: start: 202206
  2. OMNITROPE [Suspect]
     Active Substance: SOMATROPIN
     Indication: Hypopituitarism

REACTIONS (5)
  - Burning sensation [None]
  - Pain in extremity [None]
  - Therapy interrupted [None]
  - Injection related reaction [None]
  - Suspected product quality issue [None]

NARRATIVE: CASE EVENT DATE: 20221101
